FAERS Safety Report 4894872-4 (Version None)
Quarter: 2006Q1

REPORT INFORMATION
  Report Type: 
  Country: None (occurrence: None)
  Receive Date: 20060130
  Receipt Date: 20060120
  Transmission Date: 20060701
  Serious: Yes (Other)
  Sender: FDA-Public Use
  Company Number: PHBS2006GB01255

PATIENT
  Age: 34 Year
  Sex: Male

DRUGS (5)
  1. SEPTRIN [Concomitant]
     Route: 065
  2. PENICILLIN [Concomitant]
  3. MYCOPHENOLATE MOFETIL [Concomitant]
     Indication: BONE MARROW TRANSPLANT
     Dosage: 1 G, BID
     Route: 065
  4. THALIDOMIDE [Concomitant]
  5. CYCLOSPORINE [Suspect]
     Indication: BONE MARROW TRANSPLANT
     Route: 065

REACTIONS (7)
  - DEEP VEIN THROMBOSIS [None]
  - GRAFT VERSUS HOST DISEASE [None]
  - HAEMANGIOMA [None]
  - IMPAIRED HEALING [None]
  - LESION EXCISION [None]
  - SCLERODERMA [None]
  - SKIN ULCER [None]
